FAERS Safety Report 5189531-7 (Version None)
Quarter: 2006Q4

REPORT INFORMATION
  Report Type: 
  Country: None (occurrence: None)
  Receive Date: 20061215
  Receipt Date: 20061205
  Transmission Date: 20070319
  Serious: Yes (Other)
  Sender: FDA-Public Use
  Company Number: 2006149850

PATIENT
  Age: 37 Year
  Sex: Male

DRUGS (1)
  1. GLIPIZIDE [Suspect]
     Dosage: 10 MG (10 MG,1 IN 1 D)
     Dates: start: 20050201

REACTIONS (1)
  - BLOOD GLUCOSE INCREASED [None]
